FAERS Safety Report 15544636 (Version 2)
Quarter: 2019Q1

REPORT INFORMATION
  Report Type: Report from Study
  Country: US (occurrence: US)
  Receive Date: 20181024
  Receipt Date: 20190101
  Transmission Date: 20190417
  Serious: Yes (Hospitalization)
  Sender: FDA-Public Use
  Company Number: US-BIOGEN-2018BI00648454

PATIENT
  Sex: Female

DRUGS (1)
  1. TYSABRI [Suspect]
     Active Substance: NATALIZUMAB
     Indication: MULTIPLE SCLEROSIS
     Route: 065
     Dates: start: 20081204

REACTIONS (12)
  - Vision blurred [Unknown]
  - Dyspnoea [Unknown]
  - Hypoaesthesia [Unknown]
  - Back pain [Unknown]
  - Peripheral swelling [Unknown]
  - Product administration error [Unknown]
  - Malaise [Recovered/Resolved with Sequelae]
  - Limb discomfort [Unknown]
  - Gait disturbance [Unknown]
  - Joint swelling [Unknown]
  - Aphasia [Unknown]
  - Muscle twitching [Recovered/Resolved with Sequelae]
